FAERS Safety Report 20249294 (Version 1)
Quarter: 2021Q4

REPORT INFORMATION
  Report Type: Report from Study
  Country: US (occurrence: US)
  Receive Date: 20211229
  Receipt Date: 20211229
  Transmission Date: 20220303
  Serious: Yes (Hospitalization, Other)
  Sender: FDA-Public Use
  Company Number: US-TAKEDA-2021TUS082121

PATIENT
  Age: 44 Year
  Sex: Female

DRUGS (4)
  1. TEDUGLUTIDE [Suspect]
     Active Substance: TEDUGLUTIDE
     Indication: Short-bowel syndrome
     Dosage: 0.332 MILLILITER, QD
     Route: 050
     Dates: start: 20151104
  2. TEDUGLUTIDE [Suspect]
     Active Substance: TEDUGLUTIDE
     Indication: Short-bowel syndrome
     Dosage: 0.332 MILLILITER, QD
     Route: 050
     Dates: start: 20151104
  3. TEDUGLUTIDE [Suspect]
     Active Substance: TEDUGLUTIDE
     Indication: Short-bowel syndrome
     Dosage: 0.332 MILLILITER, QD
     Route: 050
     Dates: start: 20151104
  4. TEDUGLUTIDE [Suspect]
     Active Substance: TEDUGLUTIDE
     Indication: Short-bowel syndrome
     Dosage: 0.332 MILLILITER, QD
     Route: 050
     Dates: start: 20151104

REACTIONS (6)
  - Pulmonary embolism [Unknown]
  - Coronary artery embolism [Unknown]
  - Staphylococcal infection [Unknown]
  - Anorectal disorder [Unknown]
  - Fistula [Unknown]
  - Post procedural infection [Unknown]

NARRATIVE: CASE EVENT DATE: 20211102
